FAERS Safety Report 23628360 (Version 2)
Quarter: 2024Q2

REPORT INFORMATION
  Report Type: Spontaneous
  Country: US (occurrence: None)
  Receive Date: 20240313
  Receipt Date: 20240422
  Transmission Date: 20240716
  Serious: Yes (Other)
  Sender: FDA-Public Use
  Company Number: 2024A055227

PATIENT
  Sex: Female

DRUGS (1)
  1. SAPHNELO [Suspect]
     Active Substance: ANIFROLUMAB\ANIFROLUMAB-FNIA
     Dosage: UNKNOWN

REACTIONS (6)
  - Carbohydrate antigen 27.29 increased [Unknown]
  - Skin discolouration [Unknown]
  - Rash [Unknown]
  - Skin discolouration [Unknown]
  - Vitiligo [Unknown]
  - Acanthosis nigricans [Unknown]
